FAERS Safety Report 20017824 (Version 1)
Quarter: 2021Q4

REPORT INFORMATION
  Report Type: Spontaneous
  Country: KR (occurrence: KR)
  Receive Date: 20211101
  Receipt Date: 20211101
  Transmission Date: 20220304
  Serious: Yes (Other)
  Sender: FDA-Public Use
  Company Number: KR-AMGEN-KORSL2021166843

PATIENT
  Age: 42 Year
  Sex: Female

DRUGS (34)
  1. FILGRASTIM [Suspect]
     Active Substance: FILGRASTIM
     Indication: Product used for unknown indication
     Dosage: 300 UG, QD
     Route: 042
     Dates: start: 20160315, end: 20160315
  2. APREPITANT [Suspect]
     Active Substance: APREPITANT
     Indication: Product used for unknown indication
     Dosage: 150 MG, QD
     Route: 042
     Dates: start: 20160303, end: 20160303
  3. APREPITANT [Suspect]
     Active Substance: APREPITANT
     Dosage: 150 MG, QD
     Route: 042
     Dates: start: 20160325, end: 20160325
  4. APREPITANT [Suspect]
     Active Substance: APREPITANT
     Dosage: 150 MG, QD
     Route: 042
     Dates: start: 20160415, end: 20160415
  5. APREPITANT [Suspect]
     Active Substance: APREPITANT
     Dosage: 150 MG, QD
     Route: 042
     Dates: start: 20160506, end: 20160506
  6. ACYCLOVIR [Concomitant]
     Active Substance: ACYCLOVIR
     Indication: Product used for unknown indication
     Dosage: 400 MG, QD
     Route: 048
     Dates: start: 20160506, end: 20160520
  7. CYCLOPHOSPHAMIDE [Concomitant]
     Active Substance: CYCLOPHOSPHAMIDE
     Indication: Product used for unknown indication
     Dosage: 1110 MG, QD
     Route: 042
     Dates: start: 20160303, end: 20160303
  8. CYCLOPHOSPHAMIDE [Concomitant]
     Active Substance: CYCLOPHOSPHAMIDE
     Dosage: 1110 MG, QD
     Route: 042
     Dates: start: 20160325, end: 20160325
  9. CYCLOPHOSPHAMIDE [Concomitant]
     Active Substance: CYCLOPHOSPHAMIDE
     Dosage: 1110 MG, QD
     Route: 042
     Dates: start: 20160415, end: 20160415
  10. CYCLOPHOSPHAMIDE [Concomitant]
     Active Substance: CYCLOPHOSPHAMIDE
     Dosage: 1110 MG, QD
     Route: 042
     Dates: start: 20160506, end: 20160506
  11. DEXAMETHASONE [Concomitant]
     Active Substance: DEXAMETHASONE
     Indication: Product used for unknown indication
     Dosage: 5 MG, QD
     Route: 042
     Dates: start: 20160303, end: 20160303
  12. DEXAMETHASONE [Concomitant]
     Active Substance: DEXAMETHASONE
     Dosage: 5 MG, QD
     Route: 042
     Dates: start: 20160325, end: 20160325
  13. DEXAMETHASONE [Concomitant]
     Active Substance: DEXAMETHASONE
     Dosage: 5 MG, QD
     Route: 042
     Dates: start: 20160415, end: 20160415
  14. DEXAMETHASONE [Concomitant]
     Active Substance: DEXAMETHASONE
     Dosage: 5 MG, QD
     Route: 042
     Dates: start: 20160506, end: 20160506
  15. DIPHENYLPYRALINE [Concomitant]
     Active Substance: DIPHENYLPYRALINE
     Indication: Product used for unknown indication
     Dosage: 1.5 MG, QD
     Route: 058
     Dates: start: 20160325, end: 20160325
  16. DIPHENYLPYRALINE [Concomitant]
     Active Substance: DIPHENYLPYRALINE
     Dosage: 1.5 MG, QD
     Route: 058
     Dates: start: 20160415, end: 20160415
  17. DIPHENYLPYRALINE [Concomitant]
     Active Substance: DIPHENYLPYRALINE
     Dosage: 1.5 MG, QD
     Route: 058
     Dates: start: 20160506, end: 20160506
  18. DOXORUBICIN [Concomitant]
     Active Substance: DOXORUBICIN
     Indication: Product used for unknown indication
     Dosage: 111 MG, QD
     Route: 042
     Dates: start: 20160303, end: 20160303
  19. DOXORUBICIN [Concomitant]
     Active Substance: DOXORUBICIN
     Dosage: 111 MG, QD
     Route: 042
     Dates: start: 20160325, end: 20160325
  20. DOXORUBICIN [Concomitant]
     Active Substance: DOXORUBICIN
     Dosage: 111 MG, QD
     Route: 042
     Dates: start: 20160415, end: 20160415
  21. DOXORUBICIN [Concomitant]
     Active Substance: DOXORUBICIN
     Dosage: 111 MG, QD
     Route: 042
     Dates: start: 20160506, end: 20160506
  22. LENOGRASTIM [Concomitant]
     Active Substance: LENOGRASTIM
     Indication: Product used for unknown indication
     Dosage: 250 UG, QD
     Route: 058
     Dates: start: 20160405, end: 20160405
  23. LENOGRASTIM [Concomitant]
     Active Substance: LENOGRASTIM
     Dosage: 250 UG, QD
     Route: 058
     Dates: start: 20160426, end: 20160426
  24. METOCLOPRAMIDE [Concomitant]
     Active Substance: METOCLOPRAMIDE
     Indication: Product used for unknown indication
     Dosage: 5 MG, QD
     Route: 048
     Dates: start: 20160303, end: 20160510
  25. METOCLOPRAMIDE [Concomitant]
     Active Substance: METOCLOPRAMIDE
     Dosage: 10 MG, QD
     Route: 042
     Dates: start: 20160325, end: 20160325
  26. METOCLOPRAMIDE [Concomitant]
     Active Substance: METOCLOPRAMIDE
     Dosage: 10 MG, QD
     Route: 042
     Dates: start: 20160415, end: 20160415
  27. METOCLOPRAMIDE [Concomitant]
     Active Substance: METOCLOPRAMIDE
     Dosage: 10 MG, QD
     Route: 042
     Dates: start: 20160506, end: 20160506
  28. PALONOSETRON [Concomitant]
     Active Substance: PALONOSETRON
     Indication: Product used for unknown indication
     Dosage: 0.25 MG, QD
     Route: 042
     Dates: start: 20160303, end: 20160303
  29. PALONOSETRON [Concomitant]
     Active Substance: PALONOSETRON
     Dosage: 0.25 MG, QD
     Route: 042
     Dates: start: 20160325, end: 20160325
  30. PALONOSETRON [Concomitant]
     Active Substance: PALONOSETRON
     Dosage: 0.25 MG, QD
     Route: 042
     Dates: start: 20160415, end: 20160415
  31. PALONOSETRON [Concomitant]
     Active Substance: PALONOSETRON
     Dosage: 0.25 MG, QD
     Route: 042
     Dates: start: 20160506, end: 20160506
  32. ACETAMINOPHEN [Concomitant]
     Active Substance: ACETAMINOPHEN
     Indication: Product used for unknown indication
     Dosage: 650 MG, QD
     Route: 048
     Dates: start: 20160303
  33. RANITIDINE [Concomitant]
     Active Substance: RANITIDINE
     Indication: Product used for unknown indication
     Dosage: 75 MG, QD
     Route: 048
     Dates: start: 20160303, end: 20160512
  34. TRAMADOL [Concomitant]
     Active Substance: TRAMADOL
     Indication: Product used for unknown indication
     Dosage: 50 MG, QD
     Route: 042
     Dates: start: 20160303, end: 20160303

REACTIONS (13)
  - Furuncle [Recovered/Resolved]
  - Skin discolouration [Recovered/Resolved]
  - Dyspepsia [Recovered/Resolved]
  - Neutrophil count decreased [Recovered/Resolved]
  - Neutrophil count decreased [Recovered/Resolved]
  - Neutrophil count decreased [Recovered/Resolved]
  - Neutrophil count decreased [Recovered/Resolved]
  - Dizziness [Recovered/Resolved]
  - Constipation [Recovered/Resolved]
  - Dyspnoea [Recovered/Resolved]
  - Nausea [Recovered/Resolved]
  - Nausea [Recovered/Resolved]
  - Pain in extremity [Recovered/Resolved]

NARRATIVE: CASE EVENT DATE: 20160315
